FAERS Safety Report 7774808-9 (Version None)
Quarter: 2011Q3

REPORT INFORMATION
  Report Type: 
  Country: None (occurrence: None)
  Receive Date: 20110921
  Receipt Date: 20110621
  Transmission Date: 20111222
  Serious: Yes (Hospitalization)
  Sender: FDA-Public Use
  Company Number: UTC-008058

PATIENT
  Sex: Male
  Weight: 47.7 kg

DRUGS (4)
  1. REVATIO [Concomitant]
  2. DIURETICS (DIURETICS) [Concomitant]
  3. TYVASO [Suspect]
     Indication: COR PULMONALE CHRONIC
     Dosage: 96 MCG (24 MCG, 4 IN 1 D), INHALATION
     Route: 055
     Dates: start: 20101015
  4. COUMADIN [Concomitant]

REACTIONS (1)
  - DIZZINESS [None]
